FAERS Safety Report 19079283 (Version 1)
Quarter: 2021Q1

REPORT INFORMATION
  Report Type: Spontaneous
  Country: US (occurrence: US)
  Receive Date: 20210331
  Receipt Date: 20210331
  Transmission Date: 20210420
  Serious: No
  Sender: FDA-Public Use
  Company Number: US-IPSEN BIOPHARMACEUTICALS, INC.-2021-04743

PATIENT
  Age: 15 Year
  Sex: Male
  Weight: 30.84 kg

DRUGS (11)
  1. VITAMIN C BIOFLAVONOID [Concomitant]
  2. ALLEGRA?D [Concomitant]
     Active Substance: FEXOFENADINE HYDROCHLORIDE\PSEUDOEPHEDRINE HYDROCHLORIDE
  3. DEPAKOTE [Concomitant]
     Active Substance: DIVALPROEX SODIUM
  4. LEVOTHYROXINE. [Concomitant]
     Active Substance: LEVOTHYROXINE
  5. MULTIVITAMIN WITH FLORIDE [Concomitant]
  6. INCRELEX [Suspect]
     Active Substance: MECASERMIN
     Indication: OFF LABEL USE
     Route: 058
     Dates: start: 2021
  7. INCRELEX [Suspect]
     Active Substance: MECASERMIN
     Route: 058
     Dates: start: 2021
  8. VITAMIN D [Concomitant]
     Active Substance: VITAMIN D NOS
  9. INCRELEX [Suspect]
     Active Substance: MECASERMIN
     Indication: SHORT STATURE
     Route: 058
     Dates: start: 202101
  10. SYMBICORT [Concomitant]
     Active Substance: BUDESONIDE\FORMOTEROL FUMARATE DIHYDRATE
  11. IRON [Concomitant]
     Active Substance: IRON

REACTIONS (6)
  - Underdose [Unknown]
  - Off label use [Unknown]
  - Hypoglycaemia [Unknown]
  - Injection site bruising [Unknown]
  - Decreased appetite [Not Recovered/Not Resolved]
  - Product dose omission issue [Unknown]

NARRATIVE: CASE EVENT DATE: 2021
